FAERS Safety Report 9838652 (Version 1)
Quarter: 2014Q1

REPORT INFORMATION
  Report Type: Spontaneous
  Country: US (occurrence: US)
  Receive Date: 20140123
  Receipt Date: 20140123
  Transmission Date: 20141002
  Serious: No
  Sender: FDA-Public Use
  Company Number: US-PFIZER INC-2014021363

PATIENT
  Age: 59 Year
  Sex: Female
  Weight: 48.98 kg

DRUGS (3)
  1. SERTRALINE HCL [Suspect]
     Indication: ANXIETY
     Dosage: HALF OF 25 MG PILL, 1XDAY
  2. SERTRALINE HCL [Suspect]
     Indication: DEPRESSION
  3. KLONOPIN [Concomitant]
     Indication: SLEEP DISORDER
     Dosage: UNK,(QUARTER OF A 0.5 MG PILL)

REACTIONS (4)
  - Malaise [Not Recovered/Not Resolved]
  - Feeling abnormal [Not Recovered/Not Resolved]
  - Diarrhoea [Not Recovered/Not Resolved]
  - Drug hypersensitivity [Unknown]
